FAERS Safety Report 16016016 (Version 1)
Quarter: 2019Q1

REPORT INFORMATION
  Report Type: Spontaneous
  Country: SE (occurrence: SE)
  Receive Date: 20190228
  Receipt Date: 20190228
  Transmission Date: 20190418
  Serious: Yes (Other)
  Sender: FDA-Public Use
  Company Number: SE-ACCORD-109313

PATIENT
  Sex: Female

DRUGS (1)
  1. SPIRONOLACTONE ACCORD [Suspect]
     Active Substance: SPIRONOLACTONE
     Indication: ACNE
     Dates: end: 20180104

REACTIONS (5)
  - Heart rate increased [Unknown]
  - Off label use [Unknown]
  - Weight decreased [Unknown]
  - Syncope [Unknown]
  - Headache [Unknown]
